FAERS Safety Report 13099787 (Version 1)
Quarter: 2017Q1

REPORT INFORMATION
  Report Type: Spontaneous
  Country: IN (occurrence: IN)
  Receive Date: 20170110
  Receipt Date: 20170110
  Transmission Date: 20170428
  Serious: Yes (Life-Threatening, Hospitalization, Other)
  Sender: FDA-Public Use
  Company Number: IN-CIPLA LTD.-2016IN24527

PATIENT

DRUGS (5)
  1. LORAZEPAM. [Interacting]
     Active Substance: LORAZEPAM
     Indication: DETOXIFICATION
     Dosage: 2 MG, UNK
  2. VALPROIC ACID. [Interacting]
     Active Substance: VALPROIC ACID
     Dosage: AT NIGHT
  3. LORAZEPAM. [Interacting]
     Active Substance: LORAZEPAM
     Dosage: GRADUALLY TAPERED
  4. RISPERIDONE. [Suspect]
     Active Substance: RISPERIDONE
     Indication: AGITATION
     Dosage: UP TO 5 MG
  5. VALPROIC ACID. [Interacting]
     Active Substance: VALPROIC ACID
     Indication: MANIA
     Dosage: 500 MG, UNK

REACTIONS (2)
  - Hyperammonaemic encephalopathy [Recovered/Resolved]
  - Drug interaction [Unknown]
